FAERS Safety Report 4809134-0 (Version None)
Quarter: 2005Q4

REPORT INFORMATION
  Report Type: 
  Country: None (occurrence: None)
  Receive Date: 20051024
  Receipt Date: 20051024
  Transmission Date: 20060501
  Serious: Yes (Hospitalization)
  Sender: FDA-Public Use
  Company Number: None

PATIENT
  Age: 55 Year
  Sex: Male
  Weight: 67.8 kg

DRUGS (13)
  1. GEMFIBROZIL [Suspect]
     Indication: HYPERLIPIDAEMIA
     Dosage: 600 MG DAILY
     Dates: start: 20050601
  2. SIMVASTATIN [Suspect]
     Dosage: 40 MG QHS
     Dates: start: 20050601
  3. CARDIAC CATH - POST MI [Suspect]
     Dosage: POST MI
  4. ASPIRIN [Concomitant]
  5. ALBUTEROL [Concomitant]
  6. CITALOPRAM [Concomitant]
  7. PLAVIX [Concomitant]
  8. ATIVAN [Concomitant]
  9. HUMULIN 70/30 [Concomitant]
  10. METHADONE [Concomitant]
  11. TOPROL-XL [Concomitant]
  12. OMEPRAZOLE [Concomitant]
  13. HYDROXYZINE [Concomitant]

REACTIONS (2)
  - MYOCARDIAL INFARCTION [None]
  - RHABDOMYOLYSIS [None]
